FAERS Safety Report 22349259 (Version 2)
Quarter: 2023Q2

REPORT INFORMATION
  Report Type: Spontaneous
  Country: US (occurrence: None)
  Receive Date: 20230522
  Receipt Date: 20230612
  Transmission Date: 20230721
  Serious: Yes (Other)
  Sender: FDA-Public Use
  Company Number: US-ROCHE-3351839

PATIENT
  Sex: Male

DRUGS (12)
  1. RITUXAN [Suspect]
     Active Substance: RITUXIMAB
     Indication: B-cell lymphoma
     Route: 065
     Dates: start: 20220401, end: 20220801
  2. RITUXAN [Suspect]
     Active Substance: RITUXIMAB
     Route: 065
     Dates: start: 20221001, end: 20221015
  3. ETOPOSIDE [Suspect]
     Active Substance: ETOPOSIDE
     Indication: B-cell lymphoma
     Route: 065
     Dates: start: 20220401, end: 20220801
  4. PREDNISONE [Suspect]
     Active Substance: PREDNISONE
     Indication: B-cell lymphoma
     Route: 065
     Dates: start: 20220401, end: 20220801
  5. VINCRISTINE [Suspect]
     Active Substance: VINCRISTINE
     Indication: B-cell lymphoma
     Route: 065
     Dates: start: 20220401, end: 20220801
  6. CYCLOPHOSPHAMIDE [Suspect]
     Active Substance: CYCLOPHOSPHAMIDE
     Indication: B-cell lymphoma
     Route: 065
     Dates: start: 20220401, end: 20220801
  7. DOXORUBICIN [Suspect]
     Active Substance: DOXORUBICIN
     Indication: B-cell lymphoma
     Route: 065
     Dates: start: 20220401, end: 20220801
  8. GEMCITABINE [Suspect]
     Active Substance: GEMCITABINE
     Indication: B-cell lymphoma
     Route: 065
     Dates: start: 20221001, end: 20221015
  9. OXALIPLATIN [Suspect]
     Active Substance: OXALIPLATIN
     Indication: B-cell lymphoma
     Route: 065
     Dates: start: 20221001, end: 20221015
  10. BENDAMUSTINE [Suspect]
     Active Substance: BENDAMUSTINE
     Indication: B-cell lymphoma
     Route: 065
     Dates: start: 20221101, end: 20221115
  11. TAZEMETOSTAT [Suspect]
     Active Substance: TAZEMETOSTAT
     Indication: B-cell lymphoma
     Route: 065
     Dates: start: 20230301, end: 20230515
  12. BELINOSTAT [Suspect]
     Active Substance: BELINOSTAT
     Indication: B-cell lymphoma
     Route: 065
     Dates: start: 20230301, end: 20230515

REACTIONS (2)
  - Disease progression [Unknown]
  - Off label use [Unknown]
